FAERS Safety Report 7472496-2 (Version None)
Quarter: 2011Q2

REPORT INFORMATION
  Report Type: 
  Country: None (occurrence: None)
  Receive Date: 20110511
  Receipt Date: 20110428
  Transmission Date: 20111010
  Serious: Yes (Death, Other)
  Sender: FDA-Public Use
  Company Number: PHHY2011FR38238

PATIENT
  Sex: Female

DRUGS (17)
  1. ACETAMINOPHEN [Suspect]
     Indication: ARTHRALGIA
     Dosage: 4 G, DAILY
     Route: 042
     Dates: start: 20110222, end: 20110223
  2. XANAX [Suspect]
     Indication: ANXIETY
     Dosage: 0.5 MG, UNK
     Route: 048
  3. TADYFERON B9 [Suspect]
     Indication: ANAEMIA
     Dosage: 1 DF, UNK
     Route: 048
     Dates: start: 20110223
  4. CELIPROLOL [Suspect]
     Indication: HYPERTENSION
     Dosage: 200 MG, UNK
  5. ART [Suspect]
     Indication: OSTEOARTHRITIS
     Dosage: 100 MG DAILY
  6. VALSARTAN  AND HYDROCHLOROTHIAZIDE [Suspect]
     Indication: HYPERTENSION
     Dosage: 160MG VALS AND 25 MG HYDRO, DAILY
     Route: 048
  7. TRAMADOL HCL [Suspect]
     Indication: ARTHRALGIA
     Dosage: 300 MG, UNK
     Route: 042
     Dates: start: 20110222, end: 20110223
  8. PANTOPRAZOLE [Suspect]
     Dosage: 40 MG, DAILY
     Route: 048
  9. ACETAMINOPHEN [Suspect]
     Indication: ARTHRALGIA
     Dosage: 3 G, DAILY
     Route: 048
     Dates: start: 20110224
  10. ANESTHETICS, GENERAL [Concomitant]
     Dosage: UNK
     Dates: start: 20110222
  11. XYZAL [Suspect]
     Dosage: 10 MG, DAILY
     Route: 048
  12. HYDERGINE [Suspect]
     Dosage: 4.5 MG, UNK
     Route: 048
  13. PRADAXA [Suspect]
     Indication: EMBOLISM
     Dosage: 220 MG, DAILY
     Route: 048
     Dates: start: 20110223, end: 20110228
  14. LOVENOX [Suspect]
     Indication: EMBOLISM
     Dosage: 4000 UL, UNK
     Route: 058
     Dates: start: 20110222
  15. TRAMADOL HCL [Suspect]
     Dosage: 150 MG, DAILY
     Route: 048
     Dates: start: 20110225
  16. EUPRESSYL [Suspect]
     Dosage: 120 MG DAILY
  17. LASIX [Suspect]
     Indication: HYPERTENSION
     Dosage: 60 MG, UNK

REACTIONS (8)
  - RED BLOOD CELL COUNT DECREASED [None]
  - CARDIO-RESPIRATORY ARREST [None]
  - CARDIAC MURMUR FUNCTIONAL [None]
  - SEASONAL ALLERGY [None]
  - VENOUS INSUFFICIENCY [None]
  - PAIN [None]
  - DYSPNOEA [None]
  - SUDDEN DEATH [None]
